FAERS Safety Report 8874809 (Version 1)
Quarter: 2012Q4

REPORT INFORMATION
  Report Type: 
  Country: US (occurrence: US)
  Receive Date: 20121023
  Receipt Date: 20121023
  Transmission Date: 20130627
  Serious: No
  Sender: FDA-Public Use
  Company Number: US-PFIZER INC-2012259731

PATIENT

DRUGS (1)
  1. PREMPRO [Suspect]
     Dosage: 0.3mg/1.5mg for about 1 year

REACTIONS (2)
  - Product quality issue [Unknown]
  - Drug ineffective [Unknown]
